FAERS Safety Report 26207006 (Version 1)
Quarter: 2025Q4

REPORT INFORMATION
  Report Type: Spontaneous
  Country: US (occurrence: None)
  Receive Date: 20251229
  Receipt Date: 20251229
  Transmission Date: 20260117
  Serious: Yes (Death, Hospitalization, Other)
  Sender: APOTEX
  Company Number: US-APOTEX-2025AP034661

PATIENT
  Age: 73 Year
  Sex: Female

DRUGS (5)
  1. METFORMIN [Interacting]
     Active Substance: METFORMIN HYDROCHLORIDE
     Indication: Diabetes mellitus
     Dosage: UNK
     Route: 065
  2. ISONIAZID [Interacting]
     Active Substance: ISONIAZID
     Indication: Sacroiliitis
     Dosage: UNK
     Route: 065
  3. PYRAZINAMIDE [Interacting]
     Active Substance: PYRAZINAMIDE
     Indication: Sacroiliitis
     Dosage: UNK
     Route: 065
  4. RIFAMPIN [Concomitant]
     Active Substance: RIFAMPIN
     Indication: Sacroiliitis
     Dosage: UNK
     Route: 065
  5. ETHAMBUTOL [Concomitant]
     Active Substance: ETHAMBUTOL HYDROCHLORIDE
     Indication: Sacroiliitis
     Dosage: UNK
     Route: 065

REACTIONS (5)
  - Acute respiratory failure [Fatal]
  - Toxicity to various agents [Fatal]
  - Drug interaction [Fatal]
  - Mental status changes [Fatal]
  - Metabolic acidosis [Fatal]
